FAERS Safety Report 8503468-4 (Version None)
Quarter: 2012Q3

REPORT INFORMATION
  Report Type: 
  Country: None (occurrence: None)
  Receive Date: 20120711
  Receipt Date: 20120706
  Transmission Date: 20120928
  Serious: Yes (Hospitalization)
  Sender: FDA-Public Use
  Company Number: US-GLAXOSMITHKLINE-A0983598A

PATIENT
  Age: 74 Year
  Sex: Male

DRUGS (2)
  1. NO CONCURRENT MEDICATION [Concomitant]
  2. ADVAIR DISKUS 100/50 [Suspect]
     Indication: ILL-DEFINED DISORDER
     Dosage: 1PUFF TWICE PER DAY
     Route: 055
     Dates: start: 20120101

REACTIONS (5)
  - DRUG INEFFECTIVE [None]
  - TONGUE HAEMORRHAGE [None]
  - BLADDER DISORDER [None]
  - BLOOD URINE PRESENT [None]
  - PHARYNGEAL HAEMORRHAGE [None]
